FAERS Safety Report 11187483 (Version 2)
Quarter: 2015Q3

REPORT INFORMATION
  Report Type: Spontaneous
  Country: US (occurrence: US)
  Receive Date: 20150615
  Receipt Date: 20150805
  Transmission Date: 20151125
  Serious: Yes (Other)
  Sender: FDA-Public Use
  Company Number: US-JNJFOC-20150504140

PATIENT
  Age: 95 Year
  Sex: Male
  Weight: 72.58 kg

DRUGS (1)
  1. XARELTO [Suspect]
     Active Substance: RIVAROXABAN
     Indication: DEEP VEIN THROMBOSIS
     Route: 048
     Dates: start: 20150325

REACTIONS (1)
  - Urinary bladder haemorrhage [Unknown]

NARRATIVE: CASE EVENT DATE: 20150331
